FAERS Safety Report 11717579 (Version 3)
Quarter: 2015Q4

REPORT INFORMATION
  Report Type: Spontaneous
  Country: US (occurrence: US)
  Receive Date: 20151110
  Receipt Date: 20151208
  Transmission Date: 20160304
  Serious: Yes (Other)
  Sender: FDA-Public Use
  Company Number: US-BEH-2015055432

PATIENT
  Sex: Female
  Weight: 86 kg

DRUGS (25)
  1. HIZENTRA [Suspect]
     Active Substance: HUMAN IMMUNOGLOBULIN G
     Dosage: TOTAL WEEKLY DOSE DIVIDED AS 20 ML, ON ONE DAY AND 25 ML ON THE OTHER DAY (STARTED IN 2011)
     Route: 058
  2. ZANAFLEX [Concomitant]
     Active Substance: TIZANIDINE HYDROCHLORIDE
  3. KLONOPIN [Concomitant]
     Active Substance: CLONAZEPAM
  4. STOOL SOFTNER [Concomitant]
  5. LIDOCAINE/PRILOCAINE [Concomitant]
  6. ADVIL [Concomitant]
     Active Substance: IBUPROFEN
  7. MOBIC [Concomitant]
     Active Substance: MELOXICAM
  8. LOPRESSOR [Concomitant]
     Active Substance: METOPROLOL TARTRATE
  9. VENTOLIN [Concomitant]
     Active Substance: ALBUTEROL SULFATE
  10. ABILIFY [Concomitant]
     Active Substance: ARIPIPRAZOLE
  11. ZANTAC [Concomitant]
     Active Substance: RANITIDINE HYDROCHLORIDE
  12. HIZENTRA [Suspect]
     Active Substance: HUMAN IMMUNOGLOBULIN G
     Dosage: STARTED IN 2011; USE AS DIRECTED
     Route: 058
  13. DIPHENHYDRAMINE. [Concomitant]
     Active Substance: DIPHENHYDRAMINE
  14. TYLENOL [Concomitant]
     Active Substance: ACETAMINOPHEN
  15. HIZENTRA [Suspect]
     Active Substance: HUMAN IMMUNOGLOBULIN G
     Dosage: TOTAL WEEKLY DOSE DIVIDED AS 20 ML, ON ONE DAY AND 25 ML ON THE OTHER DAY. (STARTED IN 2011)
     Route: 058
  16. ZOCOR [Concomitant]
     Active Substance: SIMVASTATIN
  17. HIZENTRA [Suspect]
     Active Substance: HUMAN IMMUNOGLOBULIN G
     Indication: IMMUNODEFICIENCY COMMON VARIABLE
     Dosage: STARTED IN 2011; USE AS DIRECTED
     Route: 058
  18. GABAPENTIN. [Concomitant]
     Active Substance: GABAPENTIN
  19. NORCO [Concomitant]
     Active Substance: ACETAMINOPHEN\HYDROCODONE BITARTRATE
  20. CYCLOBENZAPRINE [Concomitant]
     Active Substance: CYCLOBENZAPRINE
  21. LOSARTAN. [Concomitant]
     Active Substance: LOSARTAN
  22. PROBIOTIC [Concomitant]
     Active Substance: PROBIOTICS NOS
  23. NAPROXEN. [Concomitant]
     Active Substance: NAPROXEN
  24. SINGULAIR [Concomitant]
     Active Substance: MONTELUKAST SODIUM
  25. EPIPEN [Concomitant]
     Active Substance: EPINEPHRINE

REACTIONS (2)
  - Wound dehiscence [Recovering/Resolving]
  - Spinal laminectomy [Recovering/Resolving]
